FAERS Safety Report 10052039 (Version 2)
Quarter: 2014Q2

REPORT INFORMATION
  Report Type: Report from Study
  Country: BE (occurrence: BE)
  Receive Date: 20140402
  Receipt Date: 20140505
  Transmission Date: 20141212
  Serious: Yes (Hospitalization)
  Sender: FDA-Public Use
  Company Number: BE-AMGEN-BELCT2014022538

PATIENT
  Age: 67 Year
  Sex: Female

DRUGS (6)
  1. ETANERCEPT [Suspect]
     Indication: RHEUMATOID ARTHRITIS
     Dosage: 25 MG, 2 TIMES/WK
     Route: 058
     Dates: start: 200106
  2. REDOMEX [Concomitant]
     Indication: DEPRESSION
     Dosage: UNK
     Route: 065
  3. EFEXOR [Concomitant]
     Indication: DEPRESSION
     Dosage: UNK
     Route: 065
  4. LASIX                              /00032601/ [Concomitant]
     Indication: HYPERTENSION
     Dosage: UNK
     Route: 065
  5. COVERSYL                           /00790702/ [Concomitant]
     Indication: HYPERTENSION
     Dosage: UNK
     Route: 065
  6. TRAMADOL [Concomitant]
     Indication: PAIN
     Dosage: UNK
     Route: 065

REACTIONS (1)
  - Arthrodesis [Recovered/Resolved]
